FAERS Safety Report 5149141-4 (Version None)
Quarter: 2006Q4

REPORT INFORMATION
  Report Type: 
  Country: None (occurrence: None)
  Receive Date: 20061113
  Receipt Date: 20060810
  Transmission Date: 20070319
  Serious: No
  Sender: FDA-Public Use
  Company Number: US-GLAXOSMITHKLINE-A0616131A

PATIENT
  Age: 89 Year
  Sex: Male

DRUGS (6)
  1. COREG [Suspect]
     Indication: DRUG USE FOR UNKNOWN INDICATION
     Dosage: 3.5MG TWICE PER DAY
     Route: 048
     Dates: start: 20060201
  2. LISINOPRIL [Concomitant]
  3. COUMADIN [Concomitant]
  4. UNKNOWN MEDICATION [Concomitant]
  5. BUMETANIDE [Concomitant]
  6. LORAZEPAM [Concomitant]

REACTIONS (1)
  - FATIGUE [None]
